FAERS Safety Report 12093590 (Version 3)
Quarter: 2016Q2

REPORT INFORMATION
  Report Type: Report from Study
  Country: CO (occurrence: CO)
  Receive Date: 20160219
  Receipt Date: 20160407
  Transmission Date: 20160815
  Serious: Yes (Hospitalization, Other)
  Sender: FDA-Public Use
  Company Number: PHHY2015CO135353

PATIENT
  Sex: Female
  Weight: 56 kg

DRUGS (3)
  1. AFINITOR [Suspect]
     Active Substance: EVEROLIMUS
     Indication: RENAL CANCER
  2. AFINITOR [Suspect]
     Active Substance: EVEROLIMUS
     Indication: BREAST CANCER
     Dosage: 10 MG, QD
     Route: 048
     Dates: start: 20150507
  3. EXEMESTANE. [Concomitant]
     Active Substance: EXEMESTANE
     Indication: PRODUCT USED FOR UNKNOWN INDICATION
     Dosage: 25 MG, UNK
     Route: 065

REACTIONS (13)
  - Urinary tract infection [Unknown]
  - Back pain [Unknown]
  - Headache [Unknown]
  - Abdominal pain upper [Unknown]
  - Decreased immune responsiveness [Unknown]
  - Stomach mass [Unknown]
  - Stomatitis [Unknown]
  - Oral pain [Not Recovered/Not Resolved]
  - Blood creatinine increased [Unknown]
  - Feeling abnormal [Unknown]
  - Epigastric discomfort [Unknown]
  - Gastritis [Unknown]
  - Flatulence [Unknown]
